FAERS Safety Report 9741730 (Version 1)
Quarter: 2013Q4

REPORT INFORMATION
  Report Type: Spontaneous
  Country: US (occurrence: US)
  Receive Date: 20131210
  Receipt Date: 20131210
  Transmission Date: 20140711
  Serious: Yes (Other)
  Sender: FDA-Public Use
  Company Number: US-BRISTOL-MYERS SQUIBB COMPANY-19867217

PATIENT
  Age: 58 Year
  Sex: Male

DRUGS (3)
  1. ELIQUIS [Suspect]
     Indication: CEREBROVASCULAR ACCIDENT
     Route: 048
     Dates: start: 201304
  2. LIPITOR [Concomitant]
  3. QVAR [Concomitant]

REACTIONS (3)
  - Pulmonary oedema [Unknown]
  - Bronchitis [Unknown]
  - Ear infection [Unknown]
